FAERS Safety Report 5264770-5 (Version None)
Quarter: 2007Q1

REPORT INFORMATION
  Report Type: 
  Country: None (occurrence: None)
  Receive Date: 20061124
  Receipt Date: 20051019
  Transmission Date: 20070707
  Serious: No
  Sender: FDA-Public Use
  Company Number: 2005UW15710

PATIENT
  Sex: Female

DRUGS (2)
  1. ATENOLOL [Suspect]
  2. TOPROL-XL [Suspect]

REACTIONS (2)
  - MYOCARDIAL INFARCTION [None]
  - WEIGHT INCREASED [None]
